FAERS Safety Report 10241746 (Version 3)
Quarter: 2014Q3

REPORT INFORMATION
  Report Type: Report from Study
  Country: FR (occurrence: FR)
  Receive Date: 20140617
  Receipt Date: 20140917
  Transmission Date: 20150326
  Serious: Yes (Death, Hospitalization, Other)
  Sender: FDA-Public Use
  Company Number: FR-GLAXOSMITHKLINE-B1004646A

PATIENT
  Age: 67 Year
  Sex: Male
  Weight: 71 kg

DRUGS (4)
  1. BACTRIM [Concomitant]
     Active Substance: SULFAMETHOXAZOLE\TRIMETHOPRIM
     Dates: start: 2006
  2. OFATUMUMAB [Suspect]
     Active Substance: OFATUMUMAB
     Indication: CHRONIC LYMPHOCYTIC LEUKAEMIA
     Dosage: 2000MG WEEKLY
     Route: 042
     Dates: start: 20140204, end: 20140311
  3. MOPRAL [Concomitant]
     Active Substance: OMEPRAZOLE SODIUM
     Dates: start: 20140205
  4. ZELITREX [Concomitant]
     Active Substance: VALACYCLOVIR HYDROCHLORIDE
     Dates: start: 2006

REACTIONS (2)
  - Lung infection [Fatal]
  - H1N1 influenza [Fatal]

NARRATIVE: CASE EVENT DATE: 20140315
